FAERS Safety Report 26217898 (Version 1)
Quarter: 2025Q4

REPORT INFORMATION
  Report Type: Spontaneous
  Country: CA (occurrence: CA)
  Receive Date: 20251231
  Receipt Date: 20251231
  Transmission Date: 20260118
  Serious: Yes (Other)
  Sender: TEVA
  Company Number: CA-TEVA-VS-3408402

PATIENT
  Age: 33 Year
  Sex: Female

DRUGS (2)
  1. DICLOFENAC SODIUM [Suspect]
     Active Substance: DICLOFENAC SODIUM
     Indication: Psoriatic arthropathy
     Route: 065
  2. ERELZI [Suspect]
     Active Substance: ETANERCEPT-SZZS
     Indication: Psoriatic arthropathy
     Route: 065

REACTIONS (2)
  - Psoriatic arthropathy [Unknown]
  - Pain [Unknown]
